FAERS Safety Report 19239668 (Version 1)
Quarter: 2021Q2

REPORT INFORMATION
  Report Type: Spontaneous
  Country: CN (occurrence: CN)
  Receive Date: 20210510
  Receipt Date: 20210510
  Transmission Date: 20210717
  Serious: Yes (Other)
  Sender: FDA-Public Use
  Company Number: CN-PFIZER INC-2021466360

PATIENT
  Age: 5 Year
  Sex: Male
  Weight: 19 kg

DRUGS (2)
  1. AZITHROMYCIN ANHYDROUS. [Suspect]
     Active Substance: AZITHROMYCIN ANHYDROUS
     Indication: INFECTION
     Dosage: 0.2 G, 1X/DAY
     Route: 048
     Dates: start: 20210410, end: 20210412
  2. AZITHROMYCIN ANHYDROUS. [Suspect]
     Active Substance: AZITHROMYCIN ANHYDROUS
     Indication: INFECTION
     Dosage: 0.19 G, 1X/DAY
     Route: 041
     Dates: start: 20210412, end: 20210417

REACTIONS (8)
  - Off label use [Unknown]
  - Urticaria [Recovered/Resolved]
  - Angioedema [Recovered/Resolved]
  - Erythema multiforme [Recovered/Resolved]
  - Eyelid oedema [Recovered/Resolved]
  - Oedema [Recovered/Resolved]
  - Eyelid thickening [Recovered/Resolved]
  - Scleroedema [Recovered/Resolved]

NARRATIVE: CASE EVENT DATE: 20210412
